FAERS Safety Report 12904248 (Version 1)
Quarter: 2016Q4

REPORT INFORMATION
  Report Type: Spontaneous
  Country: IT (occurrence: IT)
  Receive Date: 20161102
  Receipt Date: 20161102
  Transmission Date: 20170207
  Serious: Yes (Other)
  Sender: FDA-Public Use
  Company Number: IT-JNJFOC-20161023362

PATIENT

DRUGS (6)
  1. ADRIAMYCIN [Suspect]
     Active Substance: DOXORUBICIN HYDROCHLORIDE
     Indication: EWING^S SARCOMA
     Dosage: MEDIAN CUMULATIVE DOSE- 400 MG/M2 (RANGE 80-440).
     Route: 065
  2. CYCLOPHOSPHAMIDE. [Suspect]
     Active Substance: CYCLOPHOSPHAMIDE
     Indication: EWING^S SARCOMA
     Dosage: 6,000 MG/M2 (RANGE 1,000-11,200)
     Route: 065
  3. ETOPOSIDE. [Suspect]
     Active Substance: ETOPOSIDE
     Indication: EWING^S SARCOMA
     Dosage: 1,800 MG/M2 (RANGE 720-2,250)
     Route: 065
  4. DACTINOMYCIN [Suspect]
     Active Substance: DACTINOMYCIN
     Indication: EWING^S SARCOMA
     Dosage: 7 MG TOTAL
     Route: 065
  5. VINCRISTINE [Suspect]
     Active Substance: VINCRISTINE
     Indication: EWING^S SARCOMA
     Dosage: 10 MG TOTAL
     Route: 065
  6. IFOSFAMIDE. [Suspect]
     Active Substance: IFOSFAMIDE
     Indication: EWING^S SARCOMA
     Dosage: 72,000 MG/M2 (RANGE 9,000-81,000)
     Route: 065

REACTIONS (10)
  - Product use issue [Unknown]
  - Leukopenia [Unknown]
  - Cardiac failure congestive [Recovering/Resolving]
  - Neuropathy peripheral [Unknown]
  - Off label use [Unknown]
  - Anaemia [Unknown]
  - Febrile neutropenia [Unknown]
  - Deep vein thrombosis [Unknown]
  - Nephropathy toxic [Unknown]
  - Thrombocytopenia [Unknown]
